FAERS Safety Report 15027145 (Version 2)
Quarter: 2018Q3

REPORT INFORMATION
  Report Type: Report from Study
  Country: None (occurrence: US)
  Receive Date: 20180619
  Receipt Date: 20180810
  Transmission Date: 20181010
  Serious: Yes (Hospitalization, Other)
  Sender: FDA-Public Use
  Company Number: US-ABBVIE-18K-163-2391013-00

PATIENT
  Age: 37 Year
  Sex: Female
  Weight: 58.57 kg

DRUGS (5)
  1. HUMIRA [Suspect]
     Active Substance: ADALIMUMAB
     Indication: ANKYLOSING SPONDYLITIS
     Route: 058
     Dates: start: 20180502, end: 20180613
  2. APRISO [Concomitant]
     Active Substance: MESALAMINE
     Indication: COLITIS ULCERATIVE
     Dates: start: 20180705
  3. TURMERIC [Concomitant]
     Active Substance: HERBALS\TURMERIC
     Indication: SUPPLEMENTATION THERAPY
  4. VITAMIN D [Concomitant]
     Active Substance: CHOLECALCIFEROL
     Indication: VITAMIN SUPPLEMENTATION
  5. FISH OIL [Concomitant]
     Active Substance: FISH OIL
     Indication: SUPPLEMENTATION THERAPY

REACTIONS (9)
  - Loss of consciousness [Recovered/Resolved]
  - Seizure [Recovered/Resolved]
  - Urinary incontinence [Recovered/Resolved]
  - Nausea [Recovered/Resolved]
  - Blood prolactin increased [Unknown]
  - Contusion [Recovering/Resolving]
  - Impaired driving ability [Not Recovered/Not Resolved]
  - Fall [Recovered/Resolved]
  - Head injury [Recovering/Resolving]

NARRATIVE: CASE EVENT DATE: 20180607
